FAERS Safety Report 4527918-3 (Version None)
Quarter: 2004Q4

REPORT INFORMATION
  Report Type: 
  Country: None (occurrence: None)
  Receive Date: 20041123
  Receipt Date: 20040614
  Transmission Date: 20050328
  Serious: No
  Sender: FDA-Public Use
  Company Number: 20040700343

PATIENT
  Age: 43 Year
  Sex: Male

DRUGS (2)
  1. INFUMORPH [Suspect]
     Indication: NEUROPATHY PERIPHERAL
     Dosage: 10 MG QD IT
     Route: 037
     Dates: start: 20011030, end: 20040524
  2. CLONIDINE [Suspect]
     Indication: NEUROPATHY PERIPHERAL
     Dosage: 250 OTHER
     Route: 050

REACTIONS (1)
  - GRANULOMA [None]
